FAERS Safety Report 9461667 (Version 1)
Quarter: 2013Q3

REPORT INFORMATION
  Report Type: Spontaneous
  Country: AU (occurrence: AU)
  Receive Date: 20130816
  Receipt Date: 20130816
  Transmission Date: 20140515
  Serious: Yes (Other)
  Sender: FDA-Public Use
  Company Number: AU-AMGEN-AUSSP2013056594

PATIENT
  Sex: 0

DRUGS (10)
  1. NEULASTA [Suspect]
     Indication: LYMPHOMA
     Dosage: UNK
     Route: 065
  2. DEXAMETHASONE [Concomitant]
     Indication: LYMPHOMA
     Dosage: UNK
  3. CYTARABINE [Concomitant]
     Indication: LYMPHOMA
     Dosage: UNK
  4. CISPLATIN [Concomitant]
     Indication: LYMPHOMA
     Dosage: UNK
  5. IFOSFAMIDE [Concomitant]
     Indication: LYMPHOMA
     Dosage: UNK
  6. CARBOPLATIN [Concomitant]
     Indication: LYMPHOMA
     Dosage: UNK
  7. ETOPOSIDE [Concomitant]
     Indication: LYMPHOMA
     Dosage: UNK
  8. FLUDARABINE [Concomitant]
     Indication: LYMPHOMA
     Dosage: UNK
  9. CYCLOPHOSPHAMIDE [Concomitant]
     Indication: LYMPHOMA
     Dosage: UNK
  10. RITUXIMAB [Concomitant]
     Indication: LYMPHOMA
     Dosage: UNK

REACTIONS (2)
  - Neutrophil count decreased [Unknown]
  - Drug effect incomplete [Unknown]
